APPROVED DRUG PRODUCT: TEMAZEPAM
Active Ingredient: TEMAZEPAM
Strength: 15MG
Dosage Form/Route: CAPSULE;ORAL
Application: A071708 | Product #001
Applicant: DURAMED PHARMACEUTICALS INC SUB BARR LABORATORIES INC
Approved: Sep 29, 1988 | RLD: No | RS: No | Type: DISCN